FAERS Safety Report 8029504-X (Version None)
Quarter: 2012Q1

REPORT INFORMATION
  Report Type: 
  Country: None (occurrence: None)
  Receive Date: 20120109
  Receipt Date: 20111230
  Transmission Date: 20120608
  Serious: Yes (Hospitalization)
  Sender: FDA-Public Use
  Company Number: US-BIOGENIDEC-2010BI042618

PATIENT
  Age: 48 Year
  Sex: Female

DRUGS (3)
  1. AVONEX [Suspect]
     Route: 030
     Dates: start: 20090227
  2. AVONEX [Suspect]
     Route: 030
  3. AVONEX [Suspect]
     Indication: MULTIPLE SCLEROSIS
     Route: 030

REACTIONS (10)
  - PANCREATITIS [None]
  - FOOT FRACTURE [None]
  - LOSS OF CONSCIOUSNESS [None]
  - LIGAMENT RUPTURE [None]
  - UNRESPONSIVE TO STIMULI [None]
  - THROMBOSIS [None]
  - MULTIPLE SCLEROSIS RELAPSE [None]
  - BLOOD PRESSURE INCREASED [None]
  - FALL [None]
  - LIMB INJURY [None]
